FAERS Safety Report 22155751 (Version 3)
Quarter: 2023Q2

REPORT INFORMATION
  Report Type: Spontaneous
  Country: DZ (occurrence: DZ)
  Receive Date: 20230330
  Receipt Date: 20230426
  Transmission Date: 20230722
  Serious: Yes (Death, Other)
  Sender: FDA-Public Use
  Company Number: DZ-ORG100014127-2023000306

PATIENT
  Age: 34 Year
  Sex: Female

DRUGS (1)
  1. MITOTANE [Suspect]
     Active Substance: MITOTANE
     Indication: Adrenocortical carcinoma
     Dosage: 1.5G/DAY
     Route: 048
     Dates: start: 20230126, end: 20230320

REACTIONS (6)
  - Delirium [Unknown]
  - Renal failure [Unknown]
  - Malignant neoplasm progression [Fatal]
  - Dyspepsia [Unknown]
  - Transaminases increased [Unknown]
  - Fatigue [Unknown]

NARRATIVE: CASE EVENT DATE: 20230101
